FAERS Safety Report 15557494 (Version 3)
Quarter: 2018Q4

REPORT INFORMATION
  Report Type: Spontaneous
  Country: US (occurrence: US)
  Receive Date: 20181027
  Receipt Date: 20181115
  Transmission Date: 20190205
  Serious: Yes (Other)
  Sender: FDA-Public Use
  Company Number: US-ROCHE-2202494

PATIENT
  Age: 71 Year
  Sex: Female
  Weight: 66.28 kg

DRUGS (21)
  1. BONIVA [Suspect]
     Active Substance: IBANDRONATE SODIUM
     Route: 048
     Dates: end: 201808
  2. ASPIRIN. [Concomitant]
     Active Substance: ASPIRIN
     Route: 050
  3. ERYTHROMYCIN. [Concomitant]
     Active Substance: ERYTHROMYCIN
  4. ZANAFLEX [Concomitant]
     Active Substance: TIZANIDINE HYDROCHLORIDE
     Route: 065
  5. CALCIUM CITRATE MALATE [Concomitant]
     Active Substance: CALCIUM CITRATE MALATE
     Dosage: 250-100 MG
     Route: 065
  6. VENTOLIN [Concomitant]
     Active Substance: ALBUTEROL SULFATE
     Indication: CHRONIC OBSTRUCTIVE PULMONARY DISEASE
     Dosage: 2 PUFFS
     Route: 055
     Dates: start: 2005
  7. MELOXICAM. [Concomitant]
     Active Substance: MELOXICAM
     Indication: BACK PAIN
     Route: 048
     Dates: start: 2009
  8. XANAX [Concomitant]
     Active Substance: ALPRAZOLAM
     Route: 065
  9. PERIDEX MOUTHWASH [Concomitant]
     Route: 065
  10. PRAVACHOL [Concomitant]
     Active Substance: PRAVASTATIN SODIUM
     Route: 065
  11. MONTELUKAST [Concomitant]
     Active Substance: MONTELUKAST SODIUM
     Route: 065
  12. DULOXETINE. [Concomitant]
     Active Substance: DULOXETINE
     Route: 065
  13. MOBIC [Concomitant]
     Active Substance: MELOXICAM
     Route: 065
  14. RESTASIS [Concomitant]
     Active Substance: CYCLOSPORINE
     Route: 065
  15. LORATADINE. [Concomitant]
     Active Substance: LORATADINE
     Route: 065
  16. BONIVA [Suspect]
     Active Substance: IBANDRONATE SODIUM
     Indication: BONE DISORDER
     Route: 048
     Dates: start: 201209, end: 201806
  17. PRAVASTATIN. [Concomitant]
     Active Substance: PRAVASTATIN
     Indication: BLOOD CHOLESTEROL INCREASED
     Route: 048
     Dates: start: 2011
  18. FLUTICASONE. [Concomitant]
     Active Substance: FLUTICASONE
     Route: 065
  19. CHOLESTEROL [Concomitant]
     Active Substance: CHOLESTEROL
     Dosage: 1000 UNIT
     Route: 065
  20. TRAMADOL. [Concomitant]
     Active Substance: TRAMADOL
     Route: 065
  21. VENTOLIN HFA [Concomitant]
     Active Substance: ALBUTEROL SULFATE
     Dosage: 90 MCH/ACTULATION
     Route: 065

REACTIONS (11)
  - Pain [Not Recovered/Not Resolved]
  - Swelling face [Not Recovered/Not Resolved]
  - Bone deformity [Not Recovered/Not Resolved]
  - Osteomyelitis [Not Recovered/Not Resolved]
  - Osteitis [Not Recovered/Not Resolved]
  - Stomatitis [Unknown]
  - Pain in jaw [Not Recovered/Not Resolved]
  - Jaw disorder [Not Recovered/Not Resolved]
  - Erythema [Not Recovered/Not Resolved]
  - Osteonecrosis of jaw [Not Recovered/Not Resolved]
  - Exposed bone in jaw [Not Recovered/Not Resolved]

NARRATIVE: CASE EVENT DATE: 201806
